FAERS Safety Report 18410175 (Version 1)
Quarter: 2020Q4

REPORT INFORMATION
  Report Type: Spontaneous
  Country: US (occurrence: US)
  Receive Date: 20201021
  Receipt Date: 20201021
  Transmission Date: 20210114
  Serious: Yes (Hospitalization, Other)
  Sender: FDA-Public Use
  Company Number: None

PATIENT
  Age: 74 Year
  Sex: Female

DRUGS (6)
  1. LEUPROLIDE [Concomitant]
     Active Substance: LEUPROLIDE
  2. PROGRESTERONE 50MG/ML NMDV 10ML [Suspect]
     Active Substance: PROGESTERONE
     Indication: INFERTILITY FEMALE
     Route: 041
     Dates: start: 20200605
  3. ESTRADIOL. [Concomitant]
     Active Substance: ESTRADIOL
  4. GONAL-G TGG [Concomitant]
  5. PRENATAL [Concomitant]
     Active Substance: VITAMINS
  6. HCG LO DOSE [Concomitant]

REACTIONS (1)
  - Abortion spontaneous [None]

NARRATIVE: CASE EVENT DATE: 20200824
